FAERS Safety Report 16904790 (Version 1)
Quarter: 2019Q4

REPORT INFORMATION
  Report Type: Spontaneous
  Country: GB (occurrence: GB)
  Receive Date: 20191010
  Receipt Date: 20191010
  Transmission Date: 20200122
  Serious: Yes (Hospitalization)
  Sender: FDA-Public Use
  Company Number: GB-MYLANLABS-2019M1094890

PATIENT
  Age: 71 Year
  Sex: Male
  Weight: 64.3 kg

DRUGS (15)
  1. EKLIRA GENUAIR [Concomitant]
     Active Substance: ACLIDINIUM BROMIDE
  2. GLYCERYL TRINITRATE [Concomitant]
     Active Substance: NITROGLYCERIN
  3. SIMVASTATIN. [Concomitant]
     Active Substance: SIMVASTATIN
  4. PERINDOPRIL [Concomitant]
     Active Substance: PERINDOPRIL
  5. LANSOPRAZOLE. [Concomitant]
     Active Substance: LANSOPRAZOLE
     Dosage: 30 MILLIGRAM, QD
     Route: 048
  6. THIAMINE. [Concomitant]
     Active Substance: THIAMINE
  7. LERCANIDIPINE [Concomitant]
     Active Substance: LERCANIDIPINE
  8. CARBOCISTEINE [Concomitant]
     Active Substance: CARBOCYSTEINE
  9. VITAMIN B COMPOUND                 /00171501/ [Concomitant]
  10. SERTRALINE [Suspect]
     Active Substance: SERTRALINE HYDROCHLORIDE
     Indication: ANXIETY
     Dosage: 50 MILLIGRAM, QD
     Route: 048
     Dates: start: 20190606, end: 20190609
  11. ISOSORBIDE MONONITRATE. [Concomitant]
     Active Substance: ISOSORBIDE MONONITRATE
  12. ACETYLSALICYLIC ACID [Concomitant]
     Active Substance: ASPIRIN
     Dosage: 75 MILLIGRAM
  13. CARVEDILOL. [Concomitant]
     Active Substance: CARVEDILOL
  14. FOSTAIR [Concomitant]
     Active Substance: BECLOMETHASONE\FORMOTEROL
  15. TERBUTALINE [Concomitant]
     Active Substance: TERBUTALINE

REACTIONS (7)
  - Clumsiness [Unknown]
  - Blood sodium decreased [Recovered/Resolved]
  - Hypophagia [Unknown]
  - Inappropriate antidiuretic hormone secretion [Recovering/Resolving]
  - Blood magnesium decreased [Unknown]
  - Malaise [Unknown]
  - Dizziness [Unknown]

NARRATIVE: CASE EVENT DATE: 20190609
